FAERS Safety Report 5727204-X (Version None)
Quarter: 2008Q2

REPORT INFORMATION
  Report Type: 
  Country: None (occurrence: None)
  Receive Date: 20080501
  Receipt Date: 20070711
  Transmission Date: 20081010
  Serious: Yes (Other)
  Sender: FDA-Public Use
  Company Number: PHEH2007US02581

PATIENT
  Age: 52 Year
  Sex: Female

DRUGS (2)
  1. LOTREL [Suspect]
     Indication: HYPERTENSION
     Dosage: 5/10 MG, QD, ORAL ; 5/20 MG, QD, ORAL
     Route: 047
     Dates: start: 20070126, end: 20070201
  2. LOTREL [Suspect]
     Indication: HYPERTENSION
     Dosage: 5/10 MG, QD, ORAL ; 5/20 MG, QD, ORAL
     Route: 047
     Dates: start: 20070201

REACTIONS (2)
  - ANGIOEDEMA [None]
  - BLOOD PRESSURE INADEQUATELY CONTROLLED [None]
